FAERS Safety Report 23677730 (Version 1)
Quarter: 2024Q1

REPORT INFORMATION
  Report Type: Spontaneous
  Country: DE (occurrence: DE)
  Receive Date: 20240327
  Receipt Date: 20240327
  Transmission Date: 20240410
  Serious: Yes (Other)
  Sender: FDA-Public Use
  Company Number: None

PATIENT
  Age: 82 Year
  Sex: Male
  Weight: 80 kg

DRUGS (12)
  1. MEROPENEM [Suspect]
     Active Substance: MEROPENEM
     Indication: Pneumonia
     Dosage: FREQ:8 H;1-1-1
     Route: 042
     Dates: start: 20231218, end: 20231227
  2. PIPERACILLIN SODIUM\TAZOBACTAM SODIUM [Suspect]
     Active Substance: PIPERACILLIN SODIUM\TAZOBACTAM SODIUM
     Indication: Pneumonia
     Dosage: FREQ:8 H;1-1-1
     Route: 042
     Dates: start: 20231216, end: 20231218
  3. CERTOPARIN SODIUM [Concomitant]
     Active Substance: CERTOPARIN SODIUM
     Dosage: 0-0-1 PRE-FILLED SYRINGE
     Route: 058
     Dates: start: 20231213, end: 20240103
  4. ACTRAPID [Concomitant]
     Active Substance: INSULIN HUMAN
  5. METAMIZOLE [Concomitant]
     Active Substance: METAMIZOLE
     Dosage: FREQ:6 H;2-2-2-2
     Route: 048
     Dates: start: 20231213, end: 20231225
  6. DONEPEZIL [Concomitant]
     Active Substance: DONEPEZIL
     Dosage: 0-0-1-0
     Route: 048
     Dates: start: 20231213, end: 20240103
  7. PROPOFOL [Concomitant]
     Active Substance: PROPOFOL
     Dosage: PERFUSOR
     Dates: start: 20231213, end: 20231225
  8. SODIUM PICOSULFATE [Concomitant]
     Active Substance: SODIUM PICOSULFATE
     Dosage: FREQ:{ASNECESSARY}; 1-0-0 AS NEEDED
     Route: 048
     Dates: start: 20231213, end: 20240103
  9. BISACODYL [Concomitant]
     Active Substance: BISACODYL
     Dosage: FREQ:{ASNECESSARY};1-0-0 AS NEEDED
     Route: 054
     Dates: start: 20231213, end: 20240103
  10. POLYETHYLENE GLYCOLS [Concomitant]
     Active Substance: POLYETHYLENE GLYCOLS
     Dosage: UNK UNK, AS NEEDED, SACHET
     Route: 048
     Dates: start: 20231213, end: 20240103
  11. POLYETHYLENE GLYCOLS [Concomitant]
     Active Substance: POLYETHYLENE GLYCOLS
     Dosage: UNK
  12. INSULIN HUMAN [Concomitant]
     Active Substance: INSULIN HUMAN
     Dosage: BERLINSULIN 30/70 PEN, 20-0-24 IE
     Route: 058
     Dates: start: 20231213, end: 20240103

REACTIONS (2)
  - Hypernatraemia [Recovered/Resolved]
  - Hypokalaemia [Recovered/Resolved]

NARRATIVE: CASE EVENT DATE: 20231201
